FAERS Safety Report 8509628-0 (Version None)
Quarter: 2012Q3

REPORT INFORMATION
  Report Type: 
  Country: None (occurrence: None)
  Receive Date: 20120713
  Receipt Date: 20120703
  Transmission Date: 20120928
  Serious: Yes (Hospitalization)
  Sender: FDA-Public Use
  Company Number: ES-PFIZER INC-2012161061

PATIENT
  Age: 70 Year
  Sex: Male
  Weight: 76 kg

DRUGS (12)
  1. IRINOTECAN HYDROCHLORIDE [Suspect]
     Indication: COLORECTAL CANCER METASTATIC
     Dosage: 180 MG/M2, ON DAY 1 EVERY 14 DAYS
     Route: 042
     Dates: start: 20120216, end: 20120525
  2. ACETYLSALICYLIC ACID [Concomitant]
     Dosage: UNK
     Dates: start: 20120522, end: 20120606
  3. LORAZEPAM [Concomitant]
     Dosage: UNK
     Dates: start: 20120522, end: 20120530
  4. LEUCOVORIN CALCIUM [Suspect]
     Indication: COLORECTAL CANCER METASTATIC
     Dosage: 400 MG/M2, ON DAY 1 EVERY 14 DAYS
     Route: 042
     Dates: start: 20120216, end: 20120525
  5. FRAXIPARINE [Concomitant]
     Dosage: UNK
     Dates: start: 20120522, end: 20120606
  6. OMEPRAZOLE [Concomitant]
     Dosage: UNK
     Dates: start: 20120522
  7. FLUOROURACIL [Suspect]
     Dosage: 2400 MG/M2, DAYS 1 AND 2 EVERY 14 DAYS
     Route: 041
     Dates: end: 20120525
  8. BLINDED THERAPY [Suspect]
     Indication: COLORECTAL CANCER METASTATIC
     Dosage: ON DAY 1 EVERY 14 DAYS
     Route: 042
     Dates: start: 20120216, end: 20120525
  9. METFORMIN [Concomitant]
     Indication: DIABETES MELLITUS
     Dosage: UNK
     Dates: start: 20000101, end: 20120606
  10. GLIBENCLAMIDE [Concomitant]
     Indication: DIABETES MELLITUS
     Dosage: UNK
     Dates: start: 20000101, end: 20120606
  11. LOPERAMIDE [Concomitant]
     Dosage: UNK
     Dates: start: 20120528, end: 20120606
  12. FLUOROURACIL [Suspect]
     Indication: COLORECTAL CANCER METASTATIC
     Dosage: 400 MG/M2, BOLUS ON DAY 1
     Route: 040
     Dates: start: 20120216, end: 20120525

REACTIONS (4)
  - NEUROPATHIC ARTHROPATHY [None]
  - SUBARACHNOID HAEMORRHAGE [None]
  - FALL [None]
  - SUBDURAL HAEMATOMA [None]
